FAERS Safety Report 14033403 (Version 1)
Quarter: 2017Q4

REPORT INFORMATION
  Report Type: Spontaneous
  Country: US (occurrence: US)
  Receive Date: 20171002
  Receipt Date: 20171002
  Transmission Date: 20180321
  Serious: Yes (Other)
  Sender: FDA-Public Use
  Company Number: None

PATIENT
  Age: 56 Year
  Sex: Male
  Weight: 94.5 kg

DRUGS (7)
  1. REPATHA [Concomitant]
     Active Substance: EVOLOCUMAB
  2. ASPIRIN. [Concomitant]
     Active Substance: ASPIRIN
  3. LOVAZA [Concomitant]
     Active Substance: OMEGA-3-ACID ETHYL ESTERS
  4. MULTIVITAMIN [Concomitant]
     Active Substance: VITAMINS
  5. COQ10 [Concomitant]
     Active Substance: UBIDECARENONE
  6. AZASITE [Suspect]
     Active Substance: AZITHROMYCIN MONOHYDRATE
     Indication: DRY EYE
     Dosage: ?          QUANTITY:1 DROP(S);?
     Route: 047
     Dates: start: 20170830, end: 20170917
  7. MAGNESIUM B6 [Concomitant]

REACTIONS (2)
  - Conjunctival scar [None]
  - Eye irritation [None]

NARRATIVE: CASE EVENT DATE: 20170917
